FAERS Safety Report 18710671 (Version 2)
Quarter: 2021Q1

REPORT INFORMATION
  Report Type: Spontaneous
  Country: US (occurrence: US)
  Receive Date: 20210107
  Receipt Date: 20210114
  Transmission Date: 20210419
  Serious: Yes (Hospitalization, Other)
  Sender: FDA-Public Use
  Company Number: US-CIPLA LTD.-2020US09584

PATIENT

DRUGS (2)
  1. GABAPENTIN. [Suspect]
     Active Substance: GABAPENTIN
     Indication: PRODUCT USED FOR UNKNOWN INDICATION
     Dosage: 800 MILLIGRAM, TID
     Route: 065
  2. GABAPENTIN. [Suspect]
     Active Substance: GABAPENTIN
     Dosage: 100 MILLIGRAM, QD (AT NIGHT)
     Route: 048

REACTIONS (8)
  - Musculoskeletal stiffness [Recovering/Resolving]
  - Myoclonus [Recovering/Resolving]
  - Seizure [Recovering/Resolving]
  - Fall [Unknown]
  - Gaze palsy [Recovering/Resolving]
  - Toxicity to various agents [Recovering/Resolving]
  - Hypertensive emergency [Recovering/Resolving]
  - Confusional state [Recovering/Resolving]
